FAERS Safety Report 8917848 (Version 2)
Quarter: 2013Q2

REPORT INFORMATION
  Report Type: Spontaneous
  Country: US (occurrence: US)
  Receive Date: 20121120
  Receipt Date: 20130522
  Transmission Date: 20140414
  Serious: No
  Sender: FDA-Public Use
  Company Number: US-ASTRAZENECA-2011SE67964

PATIENT
  Age: 55 Year
  Sex: Female

DRUGS (2)
  1. NEXIUM [Suspect]
     Route: 048
  2. PRILOSEC [Suspect]
     Route: 048

REACTIONS (23)
  - Weight decreased [Unknown]
  - Gastrooesophageal reflux disease [Unknown]
  - Fear of eating [Unknown]
  - Sleep disorder due to a general medical condition [Unknown]
  - Nasopharyngitis [Unknown]
  - Sinusitis [Unknown]
  - Gastric disorder [Unknown]
  - Eye disorder [Unknown]
  - Dyspepsia [Unknown]
  - Dyspepsia [Unknown]
  - Blood pressure abnormal [Unknown]
  - Deafness [Unknown]
  - Renal disorder [Unknown]
  - Menopausal symptoms [Unknown]
  - Libido decreased [Unknown]
  - Constipation [Unknown]
  - Decreased appetite [Unknown]
  - Vitamin C deficiency [Unknown]
  - Vitamin D deficiency [Unknown]
  - Cough [Unknown]
  - Dyspepsia [Unknown]
  - Hormone level abnormal [Unknown]
  - Drug ineffective [Unknown]
